FAERS Safety Report 19060835 (Version 3)
Quarter: 2021Q2

REPORT INFORMATION
  Report Type: Spontaneous
  Country: PT (occurrence: PT)
  Receive Date: 20210326
  Receipt Date: 20210521
  Transmission Date: 20210717
  Serious: Yes (Death, Congenital Anomaly, Other)
  Sender: FDA-Public Use
  Company Number: PT-MACLEODS PHARMACEUTICALS US LTD-MAC2021030576

PATIENT

DRUGS (6)
  1. TENOFOVIR 245 MG [Suspect]
     Active Substance: TENOFOVIR DISOPROXIL
     Indication: PRODUCT USED FOR UNKNOWN INDICATION
     Dosage: 245 MILLIGRAM, QD, ONE COURSE, PRIOR TO CONCEPTION, FIRST TRIMESTER
     Route: 064
  2. TIVICAY [Suspect]
     Active Substance: DOLUTEGRAVIR SODIUM
     Indication: PRODUCT USED FOR UNKNOWN INDICATION
     Dosage: 50 MILLIGRAM, QD, TIVICAY, PRIOR TO CONCEPTION, FIRST TRIMESTER
     Route: 064
  3. DESMOPRESSIN [Suspect]
     Active Substance: DESMOPRESSIN
     Indication: DIABETES INSIPIDUS
     Dosage: 0.06 MILLIGRAM, BID, INCREASE DESMOPRESSIN DOSAGE, 2ND TRIMESTERORAL
     Route: 064
  4. DESMOPRESSIN [Suspect]
     Active Substance: DESMOPRESSIN
     Dosage: UNK UNK, BID, 0.06 MILLIGRAM, BID, INCREASE DESMOPRESSIN DOSAGE, 2ND TRIMESTER
     Route: 064
  5. EMTRICITABINE [Suspect]
     Active Substance: EMTRICITABINE
     Indication: PRODUCT USED FOR UNKNOWN INDICATION
     Dosage: 200 MILLIGRAM, QD, ONE COURSE, PRIOR TO CONCEPTION, FIRST TRIMESTER
     Route: 064
  6. HYPOTONIC SALINE [GLUCOSE\SODIUM CHLORIDE] [Suspect]
     Active Substance: DEXTROSE\SODIUM CHLORIDE
     Indication: PRODUCT USED FOR UNKNOWN INDICATION
     Dosage: UNK
     Route: 064

REACTIONS (3)
  - Foetal growth restriction [Fatal]
  - Pulmonary hypoplasia [Fatal]
  - Foetal exposure during pregnancy [Unknown]
